FAERS Safety Report 24113835 (Version 1)
Quarter: 2024Q3

REPORT INFORMATION
  Report Type: Spontaneous
  Country: US (occurrence: US)
  Receive Date: 20240720
  Receipt Date: 20240720
  Transmission Date: 20241016
  Serious: No
  Sender: AMNEAL
  Company Number: US-AMNEAL PHARMACEUTICALS-2023-AMRX-03385

PATIENT
  Age: 42 Year
  Sex: Female
  Weight: 86.168 kg

DRUGS (1)
  1. ADRENACLICK [Suspect]
     Active Substance: EPINEPHRINE
     Indication: Product used for unknown indication
     Dosage: 03.MG
     Route: 065

REACTIONS (2)
  - Device defective [Unknown]
  - No adverse event [Unknown]
